FAERS Safety Report 11928599 (Version 1)
Quarter: 2016Q1

REPORT INFORMATION
  Report Type: Spontaneous
  Country: US (occurrence: US)
  Receive Date: 20160119
  Receipt Date: 20160119
  Transmission Date: 20160526
  Serious: Yes (Life-Threatening)
  Sender: FDA-Public Use
  Company Number: US-ELI_LILLY_AND_COMPANY-US201601006476

PATIENT
  Age: 68 Year
  Sex: Male

DRUGS (2)
  1. OLANZAPINE. [Suspect]
     Active Substance: OLANZAPINE
     Indication: PAIN
     Dosage: UNK, UNKNOWN
     Route: 065
  2. FENTANYL. [Concomitant]
     Active Substance: FENTANYL
     Indication: PAIN
     Dosage: UNK, UNKNOWN
     Route: 065

REACTIONS (3)
  - Respiration abnormal [Unknown]
  - Off label use [Unknown]
  - Hypoxia [Unknown]
